FAERS Safety Report 23091703 (Version 1)
Quarter: 2023Q4

REPORT INFORMATION
  Report Type: Spontaneous
  Country: JP (occurrence: JP)
  Receive Date: 20231020
  Receipt Date: 20231020
  Transmission Date: 20240110
  Serious: Yes (Life-Threatening, Hospitalization, Other)
  Sender: FDA-Public Use
  Company Number: JP-MSD-M2023-31250

PATIENT
  Sex: Male
  Weight: 33 kg

DRUGS (1)
  1. KEYTRUDA [Suspect]
     Active Substance: PEMBROLIZUMAB
     Indication: Hodgkin^s disease recurrent
     Dosage: 200 MILLIGRAM, Q3W
     Route: 041
     Dates: start: 20230228, end: 20230626

REACTIONS (4)
  - Steroid diabetes [Unknown]
  - Immune-mediated myocarditis [Recovered/Resolved]
  - Fall [Unknown]
  - Dizziness [Unknown]

NARRATIVE: CASE EVENT DATE: 20230101
